FAERS Safety Report 9822894 (Version 2)
Quarter: 2014Q1

REPORT INFORMATION
  Report Type: Spontaneous
  Country: US (occurrence: US)
  Receive Date: 20140116
  Receipt Date: 20140116
  Transmission Date: 20141002
  Serious: No
  Sender: FDA-Public Use
  Company Number: US-ENDO PHARMACEUTICALS INC.-PERC20130139

PATIENT
  Sex: Male

DRUGS (1)
  1. PERCOCET [Suspect]
     Indication: PAIN
     Dosage: UNK
     Route: 048
     Dates: start: 1996, end: 2003

REACTIONS (2)
  - Abasia [Recovered/Resolved]
  - Pain [Recovered/Resolved]
